FAERS Safety Report 5611965-4 (Version None)
Quarter: 2008Q1

REPORT INFORMATION
  Report Type: 
  Country: None (occurrence: None)
  Receive Date: 20080204
  Receipt Date: 20080125
  Transmission Date: 20080703
  Serious: Yes (Hospitalization)
  Sender: FDA-Public Use
  Company Number: IT-BAYER-200811975GPV

PATIENT
  Age: 74 Year
  Sex: Male

DRUGS (4)
  1. ACETYLSALICYLIC ACID SRT [Suspect]
     Indication: ANTICOAGULANT THERAPY
     Dosage: TOTAL DAILY DOSE: 100 MG  UNIT DOSE: 100 MG
     Route: 048
     Dates: start: 20071110, end: 20080113
  2. COVERSYL (PERINDOPRIL TERT-BUTYLAMINE) [Concomitant]
     Indication: HYPERTENSION
     Dosage: TOTAL DAILY DOSE: 5  MG  UNIT DOSE: 5 MG
     Route: 048
     Dates: start: 20071110, end: 20080113
  3. BENTELAN (BETAMETHASONE) [Concomitant]
     Indication: BRONCHITIS
     Dosage: UNIT DOSE: 1 MG
     Route: 048
     Dates: start: 20080101, end: 20080113
  4. FLUIMUCILL (ACETYLCYSTEINE) [Concomitant]
     Indication: BRONCHITIS
     Dosage: TOTAL DAILY DOSE: 600 MG  UNIT DOSE: 600 MG
     Route: 048
     Dates: start: 20080101, end: 20080113

REACTIONS (1)
  - DUODENAL ULCER HAEMORRHAGE [None]
